FAERS Safety Report 5788984-0 (Version None)
Quarter: 2008Q2

REPORT INFORMATION
  Report Type: 
  Country: None (occurrence: None)
  Receive Date: 20080626
  Receipt Date: 20071109
  Transmission Date: 20081010
  Serious: No
  Sender: FDA-Public Use
  Company Number: US-ASTRAZENECA-2007UW26180

PATIENT
  Age: 9 Year
  Sex: Male
  Weight: 26.8 kg

DRUGS (3)
  1. PULMICORT FLEXHALER [Suspect]
     Indication: ASTHMA
     Dosage: 2 PUFFS
     Route: 055
  2. XOPENEX [Concomitant]
  3. AUGMENTIN '125' [Concomitant]
     Indication: EAR INFECTION

REACTIONS (1)
  - DYSPNOEA [None]
